FAERS Safety Report 4640656-1 (Version None)
Quarter: 2005Q2

REPORT INFORMATION
  Report Type: 
  Country: None (occurrence: None)
  Receive Date: 20050419
  Receipt Date: 20050413
  Transmission Date: 20051028
  Serious: Yes (Other)
  Sender: FDA-Public Use
  Company Number: SE-2005-004093

PATIENT
  Age: 35 Year
  Sex: Female

DRUGS (4)
  1. LEVONORGESTREL [Suspect]
     Indication: CONTRACEPTION
     Dosage: 20 UG/DAY, CONT, INTRA-UTERINE
     Route: 015
     Dates: start: 19950101, end: 20000101
  2. LEVONORGESTREL [Suspect]
     Indication: CONTRACEPTION
     Dosage: 20 UG/DAY, CONT, INTRA-UTERINE
     Route: 015
     Dates: start: 20000101, end: 20040329
  3. CITODON (CODEINE PHOSPHATE) [Concomitant]
  4. CYKLOKAPRON [Concomitant]

REACTIONS (1)
  - BREAST CYST [None]
